FAERS Safety Report 9707635 (Version 1)
Quarter: 2013Q4

REPORT INFORMATION
  Report Type: Spontaneous
  Country: US (occurrence: US)
  Receive Date: 20131125
  Receipt Date: 20131125
  Transmission Date: 20140711
  Serious: No
  Sender: FDA-Public Use
  Company Number: US-TEVA-377734USA

PATIENT
  Age: 28 Year
  Sex: Female
  Weight: 64.47 kg

DRUGS (3)
  1. PARAGARD 380A [Suspect]
     Indication: CONTRACEPTION
     Route: 015
     Dates: start: 20121218
  2. WELLBUTRIN [Concomitant]
     Indication: DEPRESSION
     Route: 048
  3. ADDERALL [Concomitant]
     Indication: ATTENTION DEFICIT/HYPERACTIVITY DISORDER
     Route: 048

REACTIONS (2)
  - Uterine spasm [Not Recovered/Not Resolved]
  - Metrorrhagia [Not Recovered/Not Resolved]
